FAERS Safety Report 6524263-1 (Version None)
Quarter: 2009Q4

REPORT INFORMATION
  Report Type: 
  Country: None (occurrence: None)
  Receive Date: 20091230
  Receipt Date: 20091230
  Transmission Date: 20100525
  Serious: Yes (Hospitalization)
  Sender: FDA-Public Use
  Company Number: None

PATIENT
  Age: 34 Year
  Sex: Male
  Weight: 43 kg

DRUGS (16)
  1. DAPSONE [Suspect]
     Indication: ANTIFUNGAL PROPHYLAXIS
     Dosage: 100MG PO DAILY
     Route: 048
     Dates: start: 20090911, end: 20090916
  2. AZITHROMYCIN [Concomitant]
  3. EMTRICITABINE [Concomitant]
  4. TENOFOVIR [Concomitant]
  5. RIFABUTIN [Concomitant]
  6. RITANOVIR [Concomitant]
  7. ATAZANAVIR [Concomitant]
  8. PREDNISONE [Concomitant]
  9. METRONIDAZOLE [Concomitant]
  10. ETHAN ALBUTEROL [Concomitant]
  11. AMP/SULB [Concomitant]
  12. RANITIDINE [Concomitant]
  13. CASPOFUNGIN ACETATE [Concomitant]
  14. MERAPENEM [Concomitant]
  15. LEVETIRACETAM [Concomitant]
  16. INSULIN ASPART [Concomitant]

REACTIONS (2)
  - CONDITION AGGRAVATED [None]
  - METHAEMOGLOBINAEMIA [None]
